FAERS Safety Report 7228283-3 (Version None)
Quarter: 2011Q1

REPORT INFORMATION
  Report Type: 
  Country: None (occurrence: None)
  Receive Date: 20110114
  Receipt Date: 20110106
  Transmission Date: 20110831
  Serious: Yes (Hospitalization)
  Sender: FDA-Public Use
  Company Number: US-PFIZER INC-2010149961

PATIENT
  Sex: Female
  Weight: 48.3 kg

DRUGS (21)
  1. PLACEBO [Suspect]
     Indication: RHEUMATOID ARTHRITIS
     Dosage: 0 MG, BID
     Route: 048
     Dates: start: 20100225, end: 20101116
  2. EFFEXOR XR [Suspect]
     Dosage: 150 MG, 1X/DAY
     Route: 048
     Dates: start: 20080101
  3. CYMBALTA [Suspect]
     Dosage: 30 MG, 1X/DAY
     Route: 048
     Dates: start: 20100701, end: 20100901
  4. MECLIZINE [Suspect]
     Indication: AKATHISIA
     Dosage: 12.5 MG, 3X/DAY
     Route: 048
     Dates: start: 20100809
  5. FOLIC ACID [Concomitant]
     Indication: SUPPLEMENTATION THERAPY
     Dosage: 2 MG, QIW
     Route: 048
     Dates: start: 20100225
  6. METHOTREXATE SODIUM [Suspect]
     Indication: RHEUMATOID ARTHRITIS
     Dosage: 10 MG, WEEKLY
     Route: 048
     Dates: start: 20100225, end: 20101116
  7. PROMETHAZINE [Concomitant]
     Indication: NAUSEA
     Dosage: 25 MG, 1X/DAY
     Route: 048
     Dates: start: 20090101
  8. METHOCARBAMOL [Suspect]
     Indication: MUSCLE RELAXANT THERAPY
     Dosage: 500 MG, AS NEEDED
     Route: 048
     Dates: start: 20090101
  9. LORTAB [Suspect]
     Indication: RHEUMATOID ARTHRITIS
     Dosage: 7.5/500 MG
     Route: 048
     Dates: start: 20060101
  10. OMEPRAZOLE [Concomitant]
     Indication: GASTROOESOPHAGEAL REFLUX DISEASE
     Dosage: 20 MG, 1X/DAY
     Route: 048
     Dates: start: 20090101
  11. ALBUTEROL [Concomitant]
     Indication: RHINITIS SEASONAL
     Dosage: 2 PUFFS
     Route: 055
     Dates: start: 20100517
  12. BENZTROPINE MESYLATE [Suspect]
     Indication: AKATHISIA
     Dosage: 1 MG, 2X/DAY
     Route: 048
     Dates: start: 20100728
  13. SOMA [Suspect]
     Indication: ANXIETY
     Dosage: 175 MG, 3X/DAY
     Route: 048
     Dates: start: 20100901
  14. LORAZEPAM [Suspect]
     Indication: ANXIETY
     Dosage: 0.25 MG, 3X/DAY
     Route: 048
     Dates: start: 20100630, end: 20100901
  15. LYRICA [Suspect]
     Dosage: 50 MG, 3X/DAY
     Route: 048
     Dates: start: 20100513
  16. SEROQUEL [Suspect]
     Indication: ANXIETY
     Dosage: 300 MG, 2X/DAY
     Route: 048
     Dates: start: 20060101
  17. LAMOTRIGINE [Suspect]
     Indication: HALLUCINATION
     Dosage: 100 MG, 1X/DAY
     Route: 048
     Dates: start: 20100901
  18. RISPERDAL [Suspect]
     Dosage: UNK
     Dates: start: 20100901, end: 20100914
  19. PREDNISONE [Concomitant]
     Indication: RHEUMATOID ARTHRITIS
     Dosage: 10 MG, 1X/DAY
     Route: 048
     Dates: start: 20100112, end: 20100914
  20. CYMBALTA [Suspect]
     Indication: ANXIETY
     Dosage: 60 MG, 1X/DAY
     Route: 048
     Dates: start: 20100901
  21. FERROUS SULFATE [Concomitant]
     Indication: SUPPLEMENTATION THERAPY
     Dosage: 325 MG, 1X/DAY
     Route: 048
     Dates: start: 20060101

REACTIONS (1)
  - PSYCHOTIC DISORDER [None]
